FAERS Safety Report 6896581-9 (Version None)
Quarter: 2010Q3

REPORT INFORMATION
  Report Type: 
  Country: None (occurrence: None)
  Receive Date: 20100729
  Receipt Date: 20100720
  Transmission Date: 20110219
  Serious: Yes (Other)
  Sender: FDA-Public Use
  Company Number: 2010JP004219

PATIENT
  Age: 77 Year
  Sex: Female

DRUGS (3)
  1. PROGRAF [Suspect]
     Indication: RHEUMATOID ARTHRITIS
     Dosage: ORAL
     Route: 048
  2. PREDNISOLONE [Concomitant]
  3. STEROID INJECTION [Concomitant]

REACTIONS (1)
  - AORTIC DISSECTION [None]
